FAERS Safety Report 15979448 (Version 2)
Quarter: 2019Q2

REPORT INFORMATION
  Report Type: Spontaneous
  Country: US (occurrence: US)
  Receive Date: 20190219
  Receipt Date: 20190509
  Transmission Date: 20190711
  Serious: Yes (Other)
  Sender: FDA-Public Use
  Company Number: US-PFIZER INC-2019063813

PATIENT
  Age: 53 Year
  Sex: Female
  Weight: 91 kg

DRUGS (2)
  1. LYRICA [Suspect]
     Active Substance: PREGABALIN
     Indication: RESTLESS LEGS SYNDROME
     Dosage: 75 MG, 2X/DAY
     Route: 048
     Dates: start: 2018
  2. LYRICA [Suspect]
     Active Substance: PREGABALIN
     Indication: FIBROMYALGIA
     Dosage: UNK, ALTERNATE DAY (TAKES ONE A DAY AND SKIPS THE OTHER)

REACTIONS (3)
  - Intentional product misuse [Unknown]
  - Pain [Unknown]
  - Cataract [Unknown]

NARRATIVE: CASE EVENT DATE: 2018
